FAERS Safety Report 5421554-2 (Version None)
Quarter: 2007Q3

REPORT INFORMATION
  Report Type: 
  Country: None (occurrence: None)
  Receive Date: 20070718
  Receipt Date: 20070102
  Transmission Date: 20080115
  Serious: Yes (Other)
  Sender: FDA-Public Use
  Company Number: 2007001808

PATIENT
  Age: 55 Year
  Sex: Female
  Weight: 81.6 kg

DRUGS (4)
  1. CELEBREX [Suspect]
     Indication: OSTEOARTHRITIS
     Dosage: (1 IN 1 D), ORAL
     Route: 048
  2. IBUPROFEN [Suspect]
     Indication: OSTEOARTHRITIS
     Dosage: (600 MG, AS NECESSARY)
  3. NEURONTIN [Concomitant]
  4. NORVASC [Concomitant]

REACTIONS (3)
  - DRUG INEFFECTIVE [None]
  - FLATULENCE [None]
  - HAEMORRHAGE [None]
